FAERS Safety Report 6900297-X (Version None)
Quarter: 2010Q3

REPORT INFORMATION
  Report Type: 
  Country: None (occurrence: None)
  Receive Date: 20100803
  Receipt Date: 20100720
  Transmission Date: 20110219
  Serious: Yes (Other)
  Sender: FDA-Public Use
  Company Number: PHHY2010JP46536

PATIENT
  Age: 77 Year
  Sex: Female

DRUGS (5)
  1. CYCLOSPORINE [Suspect]
     Indication: ANGIOIMMUNOBLASTIC T-CELL LYMPHOMA REFRACTORY
     Dosage: 120 MG/DAY
     Route: 048
  2. CYCLOSPORINE [Suspect]
     Dosage: 50 MG/DAY
     Route: 048
  3. PREDNISOLONE [Concomitant]
     Indication: ANGIOIMMUNOBLASTIC T-CELL LYMPHOMA REFRACTORY
     Dosage: 40 MG/DAY
     Route: 048
  4. PREDNISOLONE [Concomitant]
     Dosage: 5 MG/DAY
     Route: 048
  5. PREDNISOLONE [Concomitant]
     Dosage: 10 MG/DAY

REACTIONS (1)
  - PANCYTOPENIA [None]
